FAERS Safety Report 4967185-X (Version None)
Quarter: 2006Q2

REPORT INFORMATION
  Report Type: 
  Country: None (occurrence: None)
  Receive Date: 20060410
  Receipt Date: 20060328
  Transmission Date: 20061013
  Serious: Yes (Other)
  Sender: FDA-Public Use
  Company Number: 2006CG00592

PATIENT
  Age: 6 Month
  Sex: Male

DRUGS (1)
  1. MOPRAL [Suspect]
     Route: 048
     Dates: start: 20050101

REACTIONS (3)
  - DIARRHOEA INFECTIOUS [None]
  - KLEBSIELLA INFECTION [None]
  - PYREXIA [None]
